FAERS Safety Report 5372976-X (Version None)
Quarter: 2007Q2

REPORT INFORMATION
  Report Type: 
  Country: None (occurrence: None)
  Receive Date: 20070626
  Receipt Date: 20070619
  Transmission Date: 20071010
  Serious: Yes (Hospitalization)
  Sender: FDA-Public Use
  Company Number: JPI-P-001096

PATIENT
  Age: 40 Year
  Sex: Female
  Weight: 58.9676 kg

DRUGS (10)
  1. XYREM [Suspect]
     Indication: SLEEP DISORDER
     Dosage: SEE IMAGE
     Route: 048
     Dates: start: 20061101, end: 20070101
  2. XYREM [Suspect]
     Indication: SLEEP DISORDER
     Dosage: SEE IMAGE
     Route: 048
     Dates: start: 20070101, end: 20070401
  3. XYREM [Suspect]
     Indication: SLEEP DISORDER
     Dosage: SEE IMAGE
     Route: 048
     Dates: start: 20070407, end: 20070429
  4. XYREM [Suspect]
     Indication: SLEEP DISORDER
     Dosage: SEE IMAGE
     Route: 048
     Dates: start: 20070407, end: 20070429
  5. AMBIEN [Concomitant]
  6. LAMICTAL [Concomitant]
  7. THYROID TAB [Concomitant]
  8. COZAAR [Concomitant]
  9. NORCO [Concomitant]
  10. PAIN MEDICATIONS [Concomitant]

REACTIONS (7)
  - CHOLELITHIASIS [None]
  - DIZZINESS [None]
  - FIBROMYALGIA [None]
  - GASTRITIS [None]
  - INSOMNIA [None]
  - MUSCULOSKELETAL CHEST PAIN [None]
  - PAIN [None]
